FAERS Safety Report 7590345-9 (Version None)
Quarter: 2011Q3

REPORT INFORMATION
  Report Type: 
  Country: None (occurrence: None)
  Receive Date: 20110705
  Receipt Date: 20110630
  Transmission Date: 20111222
  Serious: Yes (Other)
  Sender: FDA-Public Use
  Company Number: US-ABBOTT-11P-163-0835221-00

PATIENT
  Sex: Female

DRUGS (4)
  1. HUMIRA [Suspect]
     Indication: RHEUMATOID ARTHRITIS
     Dates: start: 20100201, end: 20110602
  2. FOLIC ACID [Concomitant]
     Indication: PRODUCT USED FOR UNKNOWN INDICATION
  3. METHOTREXATE [Concomitant]
     Indication: PRODUCT USED FOR UNKNOWN INDICATION
  4. PRENATAL VITAMINS [Concomitant]
     Indication: PRODUCT USED FOR UNKNOWN INDICATION
     Dosage: DAILY

REACTIONS (9)
  - VAGINAL INFECTION [None]
  - SINUSITIS [None]
  - PAIN IN EXTREMITY [None]
  - FURUNCLE [None]
  - OEDEMA PERIPHERAL [None]
  - GENITAL CYST [None]
  - VAGINAL CYST [None]
  - RHEUMATOID ARTHRITIS [None]
  - JOINT RANGE OF MOTION DECREASED [None]
